FAERS Safety Report 22107550 (Version 5)
Quarter: 2023Q2

REPORT INFORMATION
  Report Type: Report from Study
  Country: IL (occurrence: None)
  Receive Date: 20230317
  Receipt Date: 20230525
  Transmission Date: 20230722
  Serious: Yes (Hospitalization)
  Sender: FDA-Public Use
  Company Number: IL-ROCHE-3303898

PATIENT
  Age: 82 Year
  Sex: Female
  Weight: 61.6 kg

DRUGS (15)
  1. MOSUNETUZUMAB [Suspect]
     Active Substance: MOSUNETUZUMAB
     Indication: Diffuse large B-cell lymphoma
     Dosage: START DATE OF MOST RECENT DOSE OF STUDY DRUG?PRIOR TO AE 10/JAN/2023,  START DATE OF MOST RECENT DOS
     Route: 058
     Dates: start: 20221025
  2. TOCILIZUMAB [Suspect]
     Active Substance: TOCILIZUMAB
     Indication: Diffuse large B-cell lymphoma
     Route: 042
     Dates: start: 20221026
  3. POLATUZUMAB VEDOTIN [Suspect]
     Active Substance: POLATUZUMAB VEDOTIN
     Indication: Diffuse large B-cell lymphoma
     Dosage: START DATE OF MOST RECENT DOSE OF STUDY DRUG?PRIOR TO AE/SAE 10-JAN-2023, 110MG
     Route: 042
     Dates: start: 20221025
  4. BISOPROLOL FUMARATE [Concomitant]
     Active Substance: BISOPROLOL FUMARATE
     Indication: Prophylaxis
     Route: 048
  5. LERCANIDIPINE HYDROCHLORIDE [Concomitant]
     Active Substance: LERCANIDIPINE HYDROCHLORIDE
     Indication: Prophylaxis
     Route: 048
  6. ASPIRIN [Concomitant]
     Active Substance: ASPIRIN
     Indication: Prophylaxis
     Route: 048
  7. LAMIVUDINE [Concomitant]
     Active Substance: LAMIVUDINE
     Indication: Prophylaxis
     Route: 048
  8. OXYGEN [Concomitant]
     Active Substance: OXYGEN
     Dosage: SUPPLEMENTAL OXYGEN, FIO2
     Dates: start: 20221028
  9. OXYGEN [Concomitant]
     Active Substance: OXYGEN
     Dosage: SUPPLEMENTAL OXYGEN, FIO2
     Dates: start: 20221026
  10. REMDESIVIR [Concomitant]
     Active Substance: REMDESIVIR
     Dosage: 1 TABLET
     Route: 048
     Dates: start: 20230207, end: 20230220
  11. REMDESIVIR [Concomitant]
     Active Substance: REMDESIVIR
     Dosage: 1 TABLET
     Route: 048
     Dates: start: 20230302, end: 20230309
  12. PAXLOVID [Concomitant]
     Active Substance: NIRMATRELVIR\RITONAVIR
     Dosage: 1 TABLET
     Route: 048
     Dates: start: 20230207, end: 20230220
  13. PAXLOVID [Concomitant]
     Active Substance: NIRMATRELVIR\RITONAVIR
     Dosage: 1 TABLET
     Route: 048
     Dates: start: 20230302, end: 20230307
  14. DEXAMETHASONE [Concomitant]
     Active Substance: DEXAMETHASONE
     Route: 048
     Dates: start: 20230207, end: 20230227
  15. DEXAMETHASONE [Concomitant]
     Active Substance: DEXAMETHASONE
     Route: 065
     Dates: start: 20230302, end: 20230309

REACTIONS (1)
  - Post-acute COVID-19 syndrome [Recovered/Resolved]

NARRATIVE: CASE EVENT DATE: 20230302
